FAERS Safety Report 23321912 (Version 1)
Quarter: 2023Q4

REPORT INFORMATION
  Report Type: Spontaneous
  Country: US (occurrence: US)
  Receive Date: 20231220
  Receipt Date: 20231220
  Transmission Date: 20240110
  Serious: No
  Sender: FDA-Public Use
  Company Number: US-ELI_LILLY_AND_COMPANY-US202312007904

PATIENT
  Age: 58 Year
  Sex: Male

DRUGS (10)
  1. TRULICITY [Suspect]
     Active Substance: DULAGLUTIDE
     Indication: Type 2 diabetes mellitus
     Dosage: 0.75 MG, UNKNOWN
     Route: 058
     Dates: start: 20231210
  2. DULOXETINE [Concomitant]
     Active Substance: DULOXETINE
     Indication: Depression
  3. DULOXETINE [Concomitant]
     Active Substance: DULOXETINE
     Indication: Neuropathy peripheral
  4. TRAZODONE [Concomitant]
     Active Substance: TRAZODONE HYDROCHLORIDE
     Indication: Product used for unknown indication
  5. OMEPRAZOLE [Concomitant]
     Active Substance: OMEPRAZOLE
     Indication: Gastrointestinal disorder
  6. METOPROLOL [Concomitant]
     Active Substance: METOPROLOL
     Indication: Blood pressure measurement
  7. TRAMADOL [Concomitant]
     Active Substance: TRAMADOL\TRAMADOL HYDROCHLORIDE
     Indication: Osteoporosis
  8. TRAMADOL [Concomitant]
     Active Substance: TRAMADOL\TRAMADOL HYDROCHLORIDE
     Indication: Osteonecrosis
  9. JARDIANCE [Concomitant]
     Active Substance: EMPAGLIFLOZIN
     Indication: Type 2 diabetes mellitus
  10. BASAGLAR [Concomitant]
     Active Substance: INSULIN GLARGINE
     Indication: Type 2 diabetes mellitus

REACTIONS (2)
  - Post procedural complication [Unknown]
  - Nausea [Recovered/Resolved]

NARRATIVE: CASE EVENT DATE: 20231210
